FAERS Safety Report 24237016 (Version 1)
Quarter: 2024Q3

REPORT INFORMATION
  Report Type: Spontaneous
  Country: US (occurrence: US)
  Receive Date: 20240822
  Receipt Date: 20240822
  Transmission Date: 20241017
  Serious: Yes (Other)
  Sender: TEVA
  Company Number: US-TEVA-VS-3232235

PATIENT
  Age: 50 Year
  Sex: Male

DRUGS (1)
  1. UZEDY [Suspect]
     Active Substance: RISPERIDONE
     Indication: Schizophrenia
     Dosage: 125/0.35 MG/ML
     Route: 065
     Dates: end: 202406

REACTIONS (2)
  - Schizophrenia [Unknown]
  - Substance use [Unknown]

NARRATIVE: CASE EVENT DATE: 20240101
